FAERS Safety Report 16839622 (Version 6)
Quarter: 2024Q1

REPORT INFORMATION
  Report Type: Spontaneous
  Country: US (occurrence: US)
  Receive Date: 20190923
  Receipt Date: 20240207
  Transmission Date: 20240410
  Serious: Yes (Other)
  Sender: FDA-Public Use
  Company Number: US-GILEAD-2019-0429613

PATIENT
  Age: 30 Year
  Sex: Male
  Weight: 82.086 kg

DRUGS (17)
  1. VIREAD [Suspect]
     Active Substance: TENOFOVIR DISOPROXIL FUMARATE
     Indication: HIV infection
     Dosage: UNK
     Route: 048
     Dates: start: 2003
  2. TRUVADA [Suspect]
     Active Substance: EMTRICITABINE\TENOFOVIR DISOPROXIL FUMARATE
     Indication: HIV infection
     Dosage: UNK
     Route: 048
     Dates: start: 2004, end: 2009
  3. ATRIPLA [Suspect]
     Active Substance: EFAVIRENZ\EMTRICITABINE\TENOFOVIR DISOPROXIL FUMARATE
     Indication: HIV infection
     Dosage: UNK
     Route: 048
     Dates: start: 200911, end: 20120813
  4. COMPLERA [Suspect]
     Active Substance: EMTRICITABINE\RILPIVIRINE HYDROCHLORIDE\TENOFOVIR DISOPROXIL FUMARATE
     Indication: HIV infection
     Dosage: UNK
     Route: 048
     Dates: start: 20120817, end: 201301
  5. COMPLERA [Suspect]
     Active Substance: EMTRICITABINE\RILPIVIRINE HYDROCHLORIDE\TENOFOVIR DISOPROXIL FUMARATE
     Dosage: UNK
     Route: 048
     Dates: start: 20120817, end: 201305
  6. DESCOVY [Concomitant]
     Active Substance: EMTRICITABINE\TENOFOVIR ALAFENAMIDE FUMARATE
  7. EDURANT [Concomitant]
     Active Substance: RILPIVIRINE HYDROCHLORIDE
  8. JULUCA [Concomitant]
     Active Substance: DOLUTEGRAVIR SODIUM\RILPIVIRINE HYDROCHLORIDE
  9. KALETRA [Concomitant]
     Active Substance: LOPINAVIR\RITONAVIR
  10. PREZISTA [Concomitant]
     Active Substance: DARUNAVIR ETHANOLATE
  11. RETROVIR [Concomitant]
     Active Substance: ZIDOVUDINE
  12. REYATAZ [Concomitant]
     Active Substance: ATAZANAVIR SULFATE
  13. SUSTIVA [Concomitant]
     Active Substance: EFAVIRENZ
  14. ENTECAVIR [Concomitant]
     Active Substance: ENTECAVIR
  15. BUTENAFINE HYDROCHLORIDE [Concomitant]
     Active Substance: BUTENAFINE HYDROCHLORIDE
  16. VALACYCLOVIR HYDROCHLORIDE [Concomitant]
     Active Substance: VALACYCLOVIR HYDROCHLORIDE
  17. VALTREX [Concomitant]
     Active Substance: VALACYCLOVIR HYDROCHLORIDE

REACTIONS (17)
  - Chronic kidney disease [Not Recovered/Not Resolved]
  - Drug resistance [Unknown]
  - Renal failure [Not Recovered/Not Resolved]
  - Pain [Not Recovered/Not Resolved]
  - Pollakiuria [Not Recovered/Not Resolved]
  - Loss of personal independence in daily activities [Not Recovered/Not Resolved]
  - Quality of life decreased [Not Recovered/Not Resolved]
  - Decreased activity [Not Recovered/Not Resolved]
  - Insomnia [Not Recovered/Not Resolved]
  - Economic problem [Not Recovered/Not Resolved]
  - Anhedonia [Not Recovered/Not Resolved]
  - Emotional distress [Not Recovered/Not Resolved]
  - Anxiety [Not Recovered/Not Resolved]
  - Bone demineralisation [Unknown]
  - Drug hypersensitivity [Unknown]
  - T-lymphocyte count abnormal [Unknown]
  - Jaundice [Unknown]

NARRATIVE: CASE EVENT DATE: 20120101
